FAERS Safety Report 9617088 (Version 1)
Quarter: 2013Q4

REPORT INFORMATION
  Report Type: Spontaneous
  Country: US (occurrence: US)
  Receive Date: 20131011
  Receipt Date: 20131011
  Transmission Date: 20140711
  Serious: Yes (Hospitalization)
  Sender: FDA-Public Use
  Company Number: US-BAYER-2013-122153

PATIENT
  Age: 50 Year
  Sex: Male

DRUGS (1)
  1. MAGNEVIST [Suspect]
     Indication: ABSCESS
     Dosage: 17 ML, ONCE
     Route: 042
     Dates: start: 20131008, end: 20131008

REACTIONS (2)
  - Nausea [None]
  - Vomiting [None]
